FAERS Safety Report 5211414-4 (Version None)
Quarter: 2007Q1

REPORT INFORMATION
  Report Type: 
  Country: None (occurrence: None)
  Receive Date: 20070112
  Receipt Date: 20070105
  Transmission Date: 20070707
  Serious: Yes (Hospitalization)
  Sender: FDA-Public Use
  Company Number: 2006BI018589

PATIENT
  Age: 54 Year
  Sex: Female

DRUGS (1)
  1. AVONEX [Suspect]
     Indication: MULTIPLE SCLEROSIS
     Dosage: 30 UG QW IM
     Route: 030
     Dates: start: 20040122

REACTIONS (6)
  - CONSTIPATION [None]
  - HYPOAESTHESIA [None]
  - IMMOBILE [None]
  - INCONTINENCE [None]
  - SENSORY LOSS [None]
  - TOOTH ABSCESS [None]
